FAERS Safety Report 7224702-7 (Version None)
Quarter: 2011Q1

REPORT INFORMATION
  Report Type: 
  Country: None (occurrence: None)
  Receive Date: 20110106
  Receipt Date: 20110106
  Transmission Date: 20110831
  Serious: Yes (Life-Threatening, Hospitalization)
  Sender: FDA-Public Use
  Company Number: None

PATIENT
  Age: 58 Year
  Sex: Female
  Weight: 104.3273 kg

DRUGS (1)
  1. AVELOX [Suspect]
     Indication: RESPIRATORY DISORDER
     Dosage: 1 - 400MG. 1 PER DAY
     Dates: start: 20101217, end: 20101217

REACTIONS (8)
  - LOSS OF CONSCIOUSNESS [None]
  - ORAL PAIN [None]
  - BLINDNESS [None]
  - PULSE ABSENT [None]
  - PAIN IN EXTREMITY [None]
  - PAIN [None]
  - DYSSTASIA [None]
  - ANAPHYLACTIC SHOCK [None]
